APPROVED DRUG PRODUCT: VIVACAINE
Active Ingredient: BUPIVACAINE HYDROCHLORIDE; EPINEPHRINE BITARTRATE
Strength: 0.5%;0.0091MG/ML
Dosage Form/Route: INJECTABLE;INJECTION
Application: A077250 | Product #001
Applicant: SEPTODONT INC
Approved: Sep 27, 2006 | RLD: No | RS: Yes | Type: RX